FAERS Safety Report 9916346 (Version 1)
Quarter: 2014Q1

REPORT INFORMATION
  Report Type: Spontaneous
  Country: FR (occurrence: FR)
  Receive Date: 20140221
  Receipt Date: 20140221
  Transmission Date: 20141002
  Serious: Yes (Hospitalization)
  Sender: FDA-Public Use
  Company Number: FR-JNJFOC-20140211420

PATIENT
  Age: 75 Year
  Sex: Male

DRUGS (6)
  1. XARELTO [Suspect]
     Indication: CEREBROVASCULAR ACCIDENT PROPHYLAXIS
     Route: 048
     Dates: start: 201306, end: 20140123
  2. XARELTO [Suspect]
     Indication: ATRIAL FIBRILLATION
     Route: 048
     Dates: start: 201306, end: 20140123
  3. AMLOR [Suspect]
     Indication: HYPERTENSION
     Route: 048
  4. ELISOR [Suspect]
     Indication: HYPERCHOLESTEROLAEMIA
     Route: 048
  5. RENITEC (ENALAPRIL) [Suspect]
     Indication: HYPERTENSION
     Route: 048
  6. RYTHMOL [Suspect]
     Indication: ATRIAL FIBRILLATION
     Route: 048

REACTIONS (1)
  - Pemphigoid [Recovering/Resolving]
